FAERS Safety Report 19159045 (Version 1)
Quarter: 2021Q2

REPORT INFORMATION
  Report Type: Spontaneous
  Country: CA (occurrence: CA)
  Receive Date: 20210420
  Receipt Date: 20210420
  Transmission Date: 20210717
  Serious: Yes (Other)
  Sender: FDA-Public Use
  Company Number: ALC2021CA002776

PATIENT
  Age: 58 Year
  Sex: Female

DRUGS (1)
  1. FLUORESCEINE [Suspect]
     Active Substance: FLUORESCEIN SODIUM
     Indication: PRODUCT USED FOR UNKNOWN INDICATION
     Dosage: UNK UNK, QD
     Route: 042

REACTIONS (17)
  - Flushing [Unknown]
  - Nasal congestion [Unknown]
  - Cold sweat [Unknown]
  - Cough [Unknown]
  - Chest discomfort [Unknown]
  - Throat irritation [Unknown]
  - Hyperhidrosis [Unknown]
  - Nausea [Unknown]
  - Paraesthesia [Unknown]
  - Diarrhoea [Unknown]
  - Fatigue [Unknown]
  - Pallor [Unknown]
  - Vomiting [Unknown]
  - Rhinorrhoea [Unknown]
  - Dyspnoea [Unknown]
  - Malaise [Unknown]
  - Tremor [Unknown]
